FAERS Safety Report 4384619-2 (Version None)
Quarter: 2004Q2

REPORT INFORMATION
  Report Type: 
  Country: None (occurrence: None)
  Receive Date: 20040625
  Receipt Date: 20030715
  Transmission Date: 20050107
  Serious: No
  Sender: FDA-Public Use
  Company Number: US-BRISTOL-MYERS SQUIBB COMPANY-12326468

PATIENT
  Age: 65 Year
  Sex: Male
  Weight: 82 kg

DRUGS (2)
  1. SINEMET [Suspect]
     Indication: PARKINSON'S DISEASE
     Dosage: 25/100MG 3 + 1/2 TABS DAILY
     Route: 048
  2. REQUIP [Concomitant]

REACTIONS (1)
  - WEIGHT INCREASED [None]
